FAERS Safety Report 21182782 (Version 2)
Quarter: 2022Q4

REPORT INFORMATION
  Report Type: Spontaneous
  Country: US (occurrence: US)
  Receive Date: 20220808
  Receipt Date: 20221129
  Transmission Date: 20230113
  Serious: No
  Sender: FDA-Public Use
  Company Number: US-SA-SAC20220804000201

PATIENT
  Age: 22 Year
  Sex: Female

DRUGS (4)
  1. DUPIXENT [Suspect]
     Active Substance: DUPILUMAB
     Indication: Dermatitis papillaris capillitii
     Dosage: 600 MG 1X
     Route: 058
     Dates: start: 202207, end: 202207
  2. DUPIXENT [Suspect]
     Active Substance: DUPILUMAB
     Indication: Dermatitis
     Dosage: 300MG QOW
     Route: 058
  3. DUPIXENT [Suspect]
     Active Substance: DUPILUMAB
     Indication: Acne
  4. DUPIXENT [Suspect]
     Active Substance: DUPILUMAB
     Indication: Dermal cyst

REACTIONS (5)
  - Dermatitis [Unknown]
  - Acne [Unknown]
  - Dermal cyst [Unknown]
  - Condition aggravated [Unknown]
  - Product use in unapproved indication [Unknown]

NARRATIVE: CASE EVENT DATE: 20220701
